FAERS Safety Report 4611555-6 (Version None)
Quarter: 2005Q2

REPORT INFORMATION
  Report Type: 
  Country: None (occurrence: None)
  Receive Date: 20050311
  Receipt Date: 20041124
  Transmission Date: 20051028
  Serious: No
  Sender: FDA-Public Use
  Company Number: 2004-BP-06488BP

PATIENT
  Age: 74 Year
  Sex: Female

DRUGS (15)
  1. SPIRIVA [Suspect]
     Indication: CHRONIC OBSTRUCTIVE PULMONARY DISEASE
     Dosage: 18 MCG (18 MCG), IH
     Route: 055
     Dates: start: 20040709, end: 20040714
  2. SPIRIVA [Suspect]
  3. OXYGEN (OXYGEN) [Concomitant]
  4. SYNTHROID [Concomitant]
  5. NORVASC [Concomitant]
  6. KCL (POTASSIUM CHLORIDE) [Concomitant]
  7. LASIX [Concomitant]
  8. ISOSORBIDE (ISOSORBIDE) [Concomitant]
  9. AMIODARONE HCL [Concomitant]
  10. DILANTIN [Concomitant]
  11. NITRO TABS [Concomitant]
  12. PRAVACHOL [Concomitant]
  13. NEXIUM [Concomitant]
  14. ACETYLSALICYLIC ACID SRT [Concomitant]
  15. ALBUTEROL [Concomitant]

REACTIONS (2)
  - CHEST PAIN [None]
  - DIZZINESS [None]
